FAERS Safety Report 10955063 (Version 4)
Quarter: 2016Q1

REPORT INFORMATION
  Report Type: Report from Study
  Country: AR (occurrence: AR)
  Receive Date: 20150325
  Receipt Date: 20160324
  Transmission Date: 20160525
  Serious: Yes (Hospitalization, Other)
  Sender: FDA-Public Use
  Company Number: PHHY2015AR035492

PATIENT
  Age: 65 Year
  Sex: Female

DRUGS (4)
  1. DIOVAN [Suspect]
     Active Substance: VALSARTAN
     Dosage: 80 MG, IN THE EVENING
     Route: 065
  2. DIOVAN [Suspect]
     Active Substance: VALSARTAN
     Dosage: 160 MG, QD (MORNING)
     Route: 048
  3. DIOVAN [Suspect]
     Active Substance: VALSARTAN
     Dosage: 120 MG, QD (ONE TAB AND A HALF DAILY) (80 MG)
     Route: 065
  4. DIOVAN [Suspect]
     Active Substance: VALSARTAN
     Indication: HYPERTENSION
     Dosage: 1.5 DF ( 80), QD
     Route: 048

REACTIONS (7)
  - Spinal disorder [Unknown]
  - Joint injury [Recovering/Resolving]
  - Nervousness [Recovering/Resolving]
  - Osteoarthritis [Unknown]
  - Gait disturbance [Recovering/Resolving]
  - Fall [Unknown]
  - Off label use [Recovering/Resolving]

NARRATIVE: CASE EVENT DATE: 201110
